FAERS Safety Report 6912086-0 (Version None)
Quarter: 2010Q3

REPORT INFORMATION
  Report Type: 
  Country: None (occurrence: None)
  Receive Date: 20100806
  Receipt Date: 20071102
  Transmission Date: 20110219
  Serious: No
  Sender: FDA-Public Use
  Company Number: US-PFIZER INC-2007092916

PATIENT
  Sex: Male
  Weight: 65.9 kg

DRUGS (2)
  1. DETROL LA [Suspect]
     Indication: BLADDER SPASM
     Dates: start: 20071101
  2. DRUG, UNSPECIFIED [Concomitant]

REACTIONS (1)
  - CHROMATURIA [None]
